FAERS Safety Report 4525417-6 (Version None)
Quarter: 2004Q4

REPORT INFORMATION
  Report Type: 
  Country: None (occurrence: None)
  Receive Date: 20041108
  Receipt Date: 20031110
  Transmission Date: 20050328
  Serious: Yes (Other)
  Sender: FDA-Public Use
  Company Number: US-JNJFOC-20040608255

PATIENT
  Age: 13 Year
  Sex: Female

DRUGS (1)
  1. TYLENOL [Suspect]
     Indication: SUICIDE ATTEMPT
     Dosage: ^50-100 PILLS^  PO
     Route: 048
     Dates: start: 19910101, end: 19910101

REACTIONS (1)
  - INTENTIONAL OVERDOSE [None]
